FAERS Safety Report 5340106-6 (Version None)
Quarter: 2007Q2

REPORT INFORMATION
  Report Type: 
  Country: None (occurrence: None)
  Receive Date: 20070525
  Receipt Date: 20070525
  Transmission Date: 20071010
  Serious: Yes (Hospitalization)
  Sender: FDA-Public Use
  Company Number: None

PATIENT
  Age: 2 Year
  Sex: Male
  Weight: 18.1439 kg

DRUGS (1)
  1. LORAZEPAM [Suspect]
     Indication: SEDATION
     Dosage: 4MG OTO IM
     Route: 030
     Dates: start: 20061013

REACTIONS (4)
  - HALLUCINATION [None]
  - PSYCHOMOTOR HYPERACTIVITY [None]
  - RESTLESSNESS [None]
  - STARING [None]
